FAERS Safety Report 12355492 (Version 2)
Quarter: 2016Q2

REPORT INFORMATION
  Report Type: Spontaneous
  Country: US (occurrence: US)
  Receive Date: 20160511
  Receipt Date: 20160517
  Transmission Date: 20160815
  Serious: Yes (Other)
  Sender: FDA-Public Use
  Company Number: US-LUNDBECK-DKLU2013365

PATIENT
  Sex: Female

DRUGS (3)
  1. HERBAL MEDICATION [Suspect]
     Active Substance: HERBALS
     Indication: WEIGHT DECREASED
     Route: 065
  2. NORTHERA [Suspect]
     Active Substance: DROXIDOPA
     Indication: PRODUCT USED FOR UNKNOWN INDICATION
     Route: 065
  3. NORTHERA [Suspect]
     Active Substance: DROXIDOPA
     Route: 065

REACTIONS (5)
  - Migraine [Unknown]
  - Intentional underdose [Unknown]
  - Blood pressure increased [Unknown]
  - Loss of consciousness [Unknown]
  - Drug dose omission [Unknown]
